FAERS Safety Report 6991421-1 (Version None)
Quarter: 2010Q3

REPORT INFORMATION
  Report Type: 
  Country: None (occurrence: None)
  Receive Date: 20100916
  Receipt Date: 20090911
  Transmission Date: 20110219
  Serious: No
  Sender: FDA-Public Use
  Company Number: US-WYE-H10981109

PATIENT
  Age: 70 Year
  Sex: Female
  Weight: 59.02 kg

DRUGS (3)
  1. ADVIL PM [Suspect]
     Indication: PAIN
     Dosage: 1 LIQUI-GEL AS NEEDED X1
     Route: 048
     Dates: start: 20090901, end: 20090901
  2. ADVIL PM [Suspect]
     Indication: INSOMNIA
     Dosage: UNKNOWN
     Route: 048
     Dates: start: 20090911, end: 20090911
  3. THYROID [Concomitant]

REACTIONS (2)
  - AGITATION [None]
  - FEELING JITTERY [None]
